FAERS Safety Report 7933382-4 (Version None)
Quarter: 2011Q4

REPORT INFORMATION
  Report Type: 
  Country: None (occurrence: None)
  Receive Date: 20111122
  Receipt Date: 20111122
  Transmission Date: 20120403
  Serious: Yes (Life-Threatening, Hospitalization)
  Sender: FDA-Public Use
  Company Number: None

PATIENT
  Age: 17 Year
  Sex: Male
  Weight: 82 kg

DRUGS (1)
  1. RISPERIDONE [Suspect]
     Dosage: 1 MG
     Route: 048

REACTIONS (5)
  - CONVULSION [None]
  - LOBAR PNEUMONIA [None]
  - SYNCOPE [None]
  - PULMONARY EMBOLISM [None]
  - UPPER RESPIRATORY TRACT INFECTION [None]
